FAERS Safety Report 7419697-7 (Version None)
Quarter: 2011Q2

REPORT INFORMATION
  Report Type: 
  Country: None (occurrence: None)
  Receive Date: 20110413
  Receipt Date: 20110413
  Transmission Date: 20111010
  Serious: Yes (Death)
  Sender: FDA-Public Use
  Company Number: None

PATIENT
  Age: 72 Year
  Sex: Female

DRUGS (2)
  1. TRACLEER [Suspect]
     Dosage: 125MG 1 TAB PO BID PO
     Route: 048
     Dates: start: 20100204
  2. REVATIO [Suspect]
     Indication: PULMONARY ARTERIAL HYPERTENSION
     Dosage: 1.5 TABS PO TID PO
     Route: 048
     Dates: start: 20080228

REACTIONS (1)
  - DEATH [None]
